FAERS Safety Report 4770921-9 (Version None)
Quarter: 2005Q3

REPORT INFORMATION
  Report Type: 
  Country: None (occurrence: None)
  Receive Date: 20050914
  Receipt Date: 20050830
  Transmission Date: 20060218
  Serious: Yes (Hospitalization)
  Sender: FDA-Public Use
  Company Number: ST-2005-008588

PATIENT
  Age: 82 Year
  Sex: Female
  Weight: 46 kg

DRUGS (8)
  1. OLMETEC [Suspect]
     Indication: ESSENTIAL HYPERTENSION
     Dosage: 20 MG QD PO
     Route: 048
     Dates: start: 20050518, end: 20050620
  2. LUPPRAC [Suspect]
     Dosage: 8 MG QD PO
     Route: 048
     Dates: start: 20050425, end: 20050620
  3. NORVASC [Concomitant]
  4. ASPIRIN [Concomitant]
  5. LASIX [Concomitant]
  6. WARFARIN SODIUM [Concomitant]
  7. ANCARON [Concomitant]
  8. ISOSORBIDE MONONITRATE [Concomitant]

REACTIONS (2)
  - CREATININE RENAL CLEARANCE DECREASED [None]
  - RENAL DISORDER [None]
